FAERS Safety Report 12758991 (Version 1)
Quarter: 2016Q3

REPORT INFORMATION
  Report Type: Spontaneous
  Country: US (occurrence: US)
  Receive Date: 20160916
  Receipt Date: 20160916
  Transmission Date: 20161109
  Serious: No
  Sender: FDA-Public Use
  Company Number: None

PATIENT
  Age: 50 Year
  Sex: Female

DRUGS (1)
  1. CAPECITABINE 500MG GENENTECH [Suspect]
     Active Substance: CAPECITABINE
     Dosage: 500MG 3 TABS BID ON MON-FRI WITH PO
     Route: 048
     Dates: start: 20160527, end: 20160705

REACTIONS (4)
  - Rash [None]
  - Radiation injury [None]
  - Radiation interaction [None]
  - Breast pain [None]

NARRATIVE: CASE EVENT DATE: 20160705
